FAERS Safety Report 21719709 (Version 1)
Quarter: 2022Q4

REPORT INFORMATION
  Report Type: Report from Study
  Country: IT (occurrence: IT)
  Receive Date: 20221213
  Receipt Date: 20221213
  Transmission Date: 20230112
  Serious: Yes (Other)
  Sender: FDA-Public Use
  Company Number: IT-SUN PHARMACEUTICAL INDUSTRIES LTD-2022RR-368382

PATIENT
  Age: 64 Year
  Sex: Male

DRUGS (4)
  1. TEMOZOLOMIDE [Suspect]
     Active Substance: TEMOZOLOMIDE
     Indication: Glioma
     Dosage: UNK
     Route: 065
  2. LEVETIRACETAM [Suspect]
     Active Substance: LEVETIRACETAM
     Indication: Epilepsy
     Dosage: 3000 MILLIGRAM, DAILY
     Route: 065
  3. PHENYTOIN [Suspect]
     Active Substance: PHENYTOIN
     Indication: Epilepsy
     Dosage: 300 MILLIGRAM, DAILY
     Route: 065
  4. LACOSAMIDE [Suspect]
     Active Substance: LACOSAMIDE
     Indication: Epilepsy
     Dosage: 300 MILLIGRAM, DAILY
     Route: 065

REACTIONS (3)
  - Disease progression [Unknown]
  - Hyponatraemia [Unknown]
  - Drug ineffective [Unknown]
